FAERS Safety Report 21459385 (Version 4)
Quarter: 2022Q4

REPORT INFORMATION
  Report Type: Report from Study
  Country: US (occurrence: US)
  Receive Date: 20221014
  Receipt Date: 20221029
  Transmission Date: 20230113
  Serious: Yes (Death)
  Sender: FDA-Public Use
  Company Number: US-ABBVIE-4154716

PATIENT
  Sex: Female
  Weight: 35.38 kg

DRUGS (8)
  1. DUOPA [Suspect]
     Active Substance: CARBIDOPA\LEVODOPA
     Indication: Parkinson^s disease
     Route: 050
     Dates: start: 20220920
  2. DUOPA [Suspect]
     Active Substance: CARBIDOPA\LEVODOPA
  3. Moderna Covid19 Vaccine [Concomitant]
     Indication: COVID-19 immunisation
     Dosage: MODERNA
  4. MIRAPEX [Concomitant]
     Active Substance: PRAMIPEXOLE DIHYDROCHLORIDE
     Indication: Parkinson^s disease
     Route: 065
  5. RESTASIS [Concomitant]
     Active Substance: CYCLOSPORINE
     Indication: Eye disorder
     Route: 065
  6. AMANTADINE [Concomitant]
     Active Substance: AMANTADINE
     Indication: Parkinson^s disease
     Route: 065
  7. Covid-19 Vaccine [Concomitant]
     Indication: COVID-19 immunisation
     Dosage: FIRST DOSE
     Route: 030
  8. Covid-19 Vaccine [Concomitant]
     Indication: COVID-19 immunisation
     Dosage: SECOND DOSE
     Route: 030

REACTIONS (9)
  - Death [Fatal]
  - Panic attack [Unknown]
  - Hallucination [Unknown]
  - Fear [Unknown]
  - Anxiety [Unknown]
  - Unevaluable event [Unknown]
  - Restless legs syndrome [Unknown]
  - Fear of falling [Unknown]
  - Drug ineffective [Unknown]

NARRATIVE: CASE EVENT DATE: 20220101
